FAERS Safety Report 7415950-1 (Version None)
Quarter: 2011Q2

REPORT INFORMATION
  Report Type: 
  Country: None (occurrence: None)
  Receive Date: 20110406
  Receipt Date: 20110323
  Transmission Date: 20111010
  Serious: Yes (Hospitalization)
  Sender: FDA-Public Use
  Company Number: 013425

PATIENT
  Sex: Female
  Weight: 61 kg

DRUGS (17)
  1. SIMVASTATIN [Concomitant]
  2. BISOPROLOL FUMARATE [Suspect]
     Indication: ARRHYTHMIA
     Dosage: (5 MG QD)
  3. ORFIRIL /00228501/ [Concomitant]
  4. PANTOPRAZOLE [Concomitant]
  5. NEUPRO [Suspect]
     Indication: PARKINSON'S DISEASE
     Dosage: (1 MG QD TRANSDERMAL), (3 MG QD TRANSDERMAL) ,(4 MG QD TRANSDERMA)
     Route: 062
     Dates: start: 20100409, end: 20100505
  6. NEUPRO [Suspect]
     Indication: PARKINSON'S DISEASE
     Dosage: (1 MG QD TRANSDERMAL), (3 MG QD TRANSDERMAL) ,(4 MG QD TRANSDERMA)
     Route: 062
     Dates: start: 20100506, end: 20100527
  7. NEUPRO [Suspect]
     Indication: PARKINSON'S DISEASE
     Dosage: (1 MG QD TRANSDERMAL), (3 MG QD TRANSDERMAL) ,(4 MG QD TRANSDERMA)
     Route: 062
     Dates: start: 20100528
  8. ISOSORBIDE DINITRATE [Suspect]
     Indication: HYPERTENSION
     Dosage: (20 MG BID)
     Dates: start: 20100520, end: 20100609
  9. TORASEMID (TORASEMID) (NOT SPECIFIED) [Suspect]
     Indication: HYPERTENSION
     Dosage: (10 MG BID)
  10. DELIX /00885601/ [Concomitant]
  11. DIGITOXIN TAB [Suspect]
     Indication: CARDIAC DISORDER
     Dosage: (0.07 MG QD)
  12. ALLOPURINOL [Concomitant]
  13. ASS (ASS) (NOT SPECIFIED) [Suspect]
     Indication: CARDIAC DISORDER
     Dosage: (100 MG QD)
  14. FALITHROM (FALITHROM) (NOT SPECIFIED) [Suspect]
     Indication: CARDIAC FAILURE
     Dosage: (3 MG QD)
     Dates: start: 20100520, end: 20100609
  15. NEPHROTRANS [Concomitant]
  16. DIOVAN [Suspect]
     Indication: HYPERTENSION
     Dosage: (160 MG QD)
     Dates: start: 20100520
  17. FELODIPINE [Concomitant]

REACTIONS (6)
  - HAEMATOMA [None]
  - CARDIAC FAILURE [None]
  - RENAL FAILURE [None]
  - LOSS OF CONSCIOUSNESS [None]
  - CONDITION AGGRAVATED [None]
  - FALL [None]
